FAERS Safety Report 7545314-1 (Version None)
Quarter: 2011Q2

REPORT INFORMATION
  Report Type: 
  Country: None (occurrence: None)
  Receive Date: 20110613
  Receipt Date: 20110613
  Transmission Date: 20111010
  Serious: No
  Sender: FDA-Public Use
  Company Number: None

PATIENT
  Sex: Female
  Weight: 107.9561 kg

DRUGS (2)
  1. DYSPORT [Suspect]
     Indication: SKIN WRINKLING
     Dosage: 50 UNITS  10 UNITS
     Dates: start: 20110607, end: 20110607
  2. DYSPORT [Suspect]
     Indication: SKIN WRINKLING
     Dosage: 50 UNITS  10 UNITS
     Dates: start: 20110520, end: 20110520

REACTIONS (6)
  - FATIGUE [None]
  - PYREXIA [None]
  - DISCOMFORT [None]
  - HEADACHE [None]
  - DRUG HYPERSENSITIVITY [None]
  - DRUG EFFECT DECREASED [None]
